FAERS Safety Report 4872526-8 (Version None)
Quarter: 2005Q4

REPORT INFORMATION
  Report Type: 
  Country: None (occurrence: None)
  Receive Date: 20051230
  Receipt Date: 20051230
  Transmission Date: 20060501
  Serious: Yes (Hospitalization)
  Sender: FDA-Public Use
  Company Number: None

PATIENT
  Age: 54 Year
  Sex: Male
  Weight: 135.9 kg

DRUGS (21)
  1. WARFARIN SODIUM [Suspect]
     Indication: ATRIAL FIBRILLATION
     Dosage: 7.5MG DAILY EXCEPT  10MG  T/R    DAILY   PO
     Route: 048
     Dates: start: 20050827, end: 20051202
  2. APAP 325/BUTALBITAL 50/CAFF [Concomitant]
  3. AZITHROMYCIN [Concomitant]
  4. BETAMETHASONE DIPROPIONATE [Concomitant]
  5. BROMOCRIPTINE MESYLATE [Concomitant]
  6. CLOPIDOGREL BISULFATE [Concomitant]
  7. CYANOCOBALAMIN [Concomitant]
  8. CYCLOBENZAPRINE HCL [Concomitant]
  9. DOCUSATE NA [Concomitant]
  10. DOXAZOSIN MESYLATE [Concomitant]
  11. GUAIFENESIN  -ALC-F/SF- [Concomitant]
  12. HYDROCHLOROTHIAZIDE [Concomitant]
  13. ISOSORBIDE MONONITRATE [Concomitant]
  14. LISINOPRIL [Concomitant]
  15. METOPROLOL SUCCINATE [Concomitant]
  16. NITROGLYCERIN [Concomitant]
  17. OMEPRAZOLE [Concomitant]
  18. OXYCODONE AND ACETAMINOPHEN [Concomitant]
  19. OXYMETAZOLINE HCL [Concomitant]
  20. SIMVASTATIN [Concomitant]
  21. TRAMADOL HCL [Concomitant]

REACTIONS (8)
  - ASTHENIA [None]
  - COLONIC POLYP [None]
  - DIVERTICULUM [None]
  - DIZZINESS [None]
  - FATIGUE [None]
  - HAEMATOCHEZIA [None]
  - LOWER GASTROINTESTINAL HAEMORRHAGE [None]
  - RECTAL HAEMORRHAGE [None]
